FAERS Safety Report 24727071 (Version 1)
Quarter: 2024Q4

REPORT INFORMATION
  Report Type: Spontaneous
  Country: RU (occurrence: RU)
  Receive Date: 20241212
  Receipt Date: 20241212
  Transmission Date: 20250115
  Serious: Yes (Other)
  Sender: PFIZER
  Company Number: RU-PFIZER INC-PV202400159831

PATIENT
  Age: 38 Year
  Sex: Female

DRUGS (1)
  1. SOMAVERT [Suspect]
     Active Substance: PEGVISOMANT
     Dosage: UNK
     Dates: start: 202212

REACTIONS (3)
  - Migraine [Unknown]
  - Trigeminal neuralgia [Unknown]
  - Temporomandibular pain and dysfunction syndrome [Unknown]

NARRATIVE: CASE EVENT DATE: 20240206
